FAERS Safety Report 24386282 (Version 1)
Quarter: 2024Q4

REPORT INFORMATION
  Report Type: Spontaneous
  Country: US (occurrence: US)
  Receive Date: 20241001
  Receipt Date: 20241001
  Transmission Date: 20250115
  Serious: No
  Sender: AMGEN
  Company Number: US-AMGEN-USASP2024192313

PATIENT
  Age: 44 Year
  Sex: Male

DRUGS (10)
  1. PREDNISONE [Suspect]
     Active Substance: PREDNISONE
     Indication: Hidradenitis
     Dosage: UNK, LOW DOSE FOR ONE WEEK
     Route: 065
  2. PREDNISONE [Suspect]
     Active Substance: PREDNISONE
     Dosage: UNK, INCREASED AND EXTENDED HIGH DOSE PREDNISONE COURSE
     Route: 065
  3. BENZOYL PEROXIDE [Concomitant]
     Active Substance: BENZOYL PEROXIDE
     Indication: Hidradenitis
     Dosage: UNK, BENZOYL PEROXIDE WASH
     Route: 061
  4. CLINDAMYCIN [Concomitant]
     Active Substance: CLINDAMYCIN
     Indication: Hidradenitis
     Dosage: 300 MILLIGRAM, BID
     Route: 065
  5. TRIAMCINOLONE [Concomitant]
     Active Substance: TRIAMCINOLONE
     Indication: Hidradenitis
     Dosage: UNK
     Route: 065
  6. DOXYCYCLINE [Concomitant]
     Active Substance: DOXYCYCLINE
     Indication: Hidradenitis
     Dosage: 100 MILLIGRAM, BID
     Route: 048
  7. RIFAMPIN [Concomitant]
     Active Substance: RIFAMPIN
     Indication: Hidradenitis
     Dosage: 300 MILLIGRAM, BID
     Route: 065
  8. ERTAPENEM [Concomitant]
     Active Substance: ERTAPENEM
     Indication: Hidradenitis
     Dosage: UNK
     Route: 042
  9. LEVOFLOXACIN [Concomitant]
     Active Substance: LEVOFLOXACIN
     Indication: Hidradenitis
     Dosage: 500 MILLIGRAM, QD
     Route: 065
  10. METRONIDAZOLE [Concomitant]
     Active Substance: METRONIDAZOLE
     Indication: Hidradenitis
     Dosage: 500 MILLIGRAM, TID
     Route: 065

REACTIONS (2)
  - Drug effective for unapproved indication [Unknown]
  - Off label use [Unknown]
